FAERS Safety Report 8435691-1 (Version None)
Quarter: 2012Q2

REPORT INFORMATION
  Report Type: 
  Country: None (occurrence: None)
  Receive Date: 20120614
  Receipt Date: 20120530
  Transmission Date: 20120825
  Serious: Yes (Hospitalization)
  Sender: FDA-Public Use
  Company Number: US-FRI-1000030703

PATIENT
  Sex: Female

DRUGS (8)
  1. LIPITOR [Concomitant]
     Dates: start: 20100901
  2. LUAF41156 [Suspect]
     Indication: MAJOR DEPRESSION
     Dosage: 2 MG
     Route: 048
     Dates: start: 20110713
  3. ESCITALOPRAM [Suspect]
     Indication: MAJOR DEPRESSION
     Dosage: 20 MG
     Route: 048
     Dates: start: 20110407
  4. ADVIL [Concomitant]
     Dates: start: 19900101
  5. HUMALOG [Concomitant]
     Dates: start: 20111013
  6. LANTUS [Concomitant]
     Dates: start: 20111013
  7. CALCIUM CARBONATE [Concomitant]
     Dates: start: 20060101
  8. LISINOPRIL [Concomitant]
     Dates: start: 20111013

REACTIONS (2)
  - DIABETIC KETOACIDOSIS [None]
  - PANCREATITIS [None]
